FAERS Safety Report 5916090-0 (Version None)
Quarter: 2008Q4

REPORT INFORMATION
  Report Type: 
  Country: None (occurrence: None)
  Receive Date: 20081013
  Receipt Date: 20081001
  Transmission Date: 20090506
  Serious: Yes (Hospitalization, Other)
  Sender: FDA-Public Use
  Company Number: US-CELGENEUS-163-21880-08010482

PATIENT
  Sex: Female
  Weight: 52.2 kg

DRUGS (5)
  1. REVLIMID [Suspect]
     Dates: start: 20071119, end: 20071209
  2. TEMSIROLIMUS [Suspect]
     Indication: MULTIPLE MYELOMA
     Dosage: 15MG OVER 30 MIN
     Route: 051
     Dates: start: 20071119, end: 20071210
  3. MELPHALAN [Suspect]
     Dosage: PULSE DOSED
     Route: 065
     Dates: start: 20071228, end: 20071231
  4. PREDNISONE [Suspect]
     Dosage: PULSE DOSED
     Route: 065
     Dates: start: 20071228, end: 20071231
  5. PAMIDRONATE DISODIUM [Concomitant]
     Indication: BLOOD CALCIUM INCREASED
     Route: 065

REACTIONS (3)
  - DEHYDRATION [None]
  - DIARRHOEA [None]
  - HYPOPHOSPHATAEMIA [None]
